FAERS Safety Report 12509618 (Version 3)
Quarter: 2016Q3

REPORT INFORMATION
  Report Type: Spontaneous
  Country: FR (occurrence: FR)
  Receive Date: 20160629
  Receipt Date: 20160714
  Transmission Date: 20161109
  Serious: Yes (Hospitalization)
  Sender: FDA-Public Use
  Company Number: FR-BAUSCH-SP06721

PATIENT
  Age: 60 Year
  Sex: Female

DRUGS (4)
  1. CELIPROLOL [Concomitant]
     Active Substance: CELIPROLOL
     Indication: PRODUCT USED FOR UNKNOWN INDICATION
  2. COLOKIT [Suspect]
     Active Substance: SODIUM PHOSPHATE, DIBASIC, ANHYDROUS\SODIUM PHOSPHATE, MONOBASIC, MONOHYDRATE
     Indication: BOWEL PREPARATION
     Route: 048
     Dates: start: 20130502, end: 20130502
  3. COOLMETEC [Suspect]
     Active Substance: HYDROCHLOROTHIAZIDE\OLMESARTAN MEDOXOMIL
     Indication: PRODUCT USED FOR UNKNOWN INDICATION
     Dosage: 20 MG/25 MG
     Route: 048
     Dates: end: 20130508
  4. LEVOTHYROXINE. [Concomitant]
     Active Substance: LEVOTHYROXINE
     Indication: PRODUCT USED FOR UNKNOWN INDICATION

REACTIONS (8)
  - Asthenia [Recovered/Resolved]
  - Acute phosphate nephropathy [Unknown]
  - Dehydration [Unknown]
  - Nausea [Recovered/Resolved]
  - Labelled drug-disease interaction medication error [Unknown]
  - Acute kidney injury [Recovered/Resolved]
  - Tremor [Unknown]
  - Renal tubular necrosis [Unknown]

NARRATIVE: CASE EVENT DATE: 20130503
